FAERS Safety Report 7095525-7 (Version None)
Quarter: 2010Q4

REPORT INFORMATION
  Report Type: 
  Country: None (occurrence: None)
  Receive Date: 20101102
  Receipt Date: 20101020
  Transmission Date: 20110411
  Serious: Yes (Life-Threatening, Hospitalization, Other)
  Sender: FDA-Public Use
  Company Number: 1000016442

PATIENT
  Age: 89 Year
  Sex: Female
  Weight: 70 kg

DRUGS (3)
  1. CITALOPRAM HYDROBROMIDE [Suspect]
     Dosage: ORAL
     Route: 048
     Dates: start: 20100916, end: 20100916
  2. TRICYCLIC ANTIDEPRESSANTS (TRICYCLIC ANTIDEPRESSANTS) [Suspect]
     Dosage: ORAL
     Route: 048
     Dates: start: 20100916, end: 20100916
  3. LORAZEPAM [Suspect]
     Dosage: ORAL
     Route: 048
     Dates: start: 20100916, end: 20100916

REACTIONS (7)
  - BUNDLE BRANCH BLOCK LEFT [None]
  - COMA [None]
  - ELECTROCARDIOGRAM QT PROLONGED [None]
  - HYPOTENSION [None]
  - HYPOTHERMIA [None]
  - INTENTIONAL OVERDOSE [None]
  - SUICIDE ATTEMPT [None]
